FAERS Safety Report 24214884 (Version 1)
Quarter: 2024Q3

REPORT INFORMATION
  Report Type: Spontaneous
  Country: PT (occurrence: PT)
  Receive Date: 20240815
  Receipt Date: 20240815
  Transmission Date: 20241016
  Serious: Yes (Other)
  Sender: TEVA
  Company Number: PT-TEVA-VS-3231417

PATIENT
  Age: 77 Year
  Sex: Male

DRUGS (7)
  1. DOMPERIDONE [Suspect]
     Active Substance: DOMPERIDONE
     Indication: Vomiting
     Route: 065
  2. LACTULOSE [Suspect]
     Active Substance: LACTULOSE
     Indication: Constipation
     Route: 065
  3. SODIUM PICOSULFATE [Suspect]
     Active Substance: SODIUM PICOSULFATE
     Indication: Constipation
     Route: 065
  4. RIVASTIGMINE [Concomitant]
     Active Substance: RIVASTIGMINE
     Indication: Parkinson^s disease
     Route: 065
  5. OCTREOTIDE [Suspect]
     Active Substance: OCTREOTIDE\OCTREOTIDE ACETATE
     Indication: Intestinal pseudo-obstruction
     Route: 065
  6. CEFUROXIME [Concomitant]
     Active Substance: CEFUROXIME
     Indication: Antibiotic therapy
     Route: 065
  7. CARBIDOPA\LEVODOPA [Suspect]
     Active Substance: CARBIDOPA\LEVODOPA
     Indication: Parkinson^s disease
     Dosage: THREE TIMES A DAY
     Route: 065

REACTIONS (6)
  - Constipation [Recovered/Resolved]
  - Bacterial translocation [Recovering/Resolving]
  - Off label use [Unknown]
  - Intestinal pseudo-obstruction [Recovered/Resolved]
  - Drug ineffective [Unknown]
  - Sepsis [Recovering/Resolving]
